FAERS Safety Report 6596159-0 (Version None)
Quarter: 2010Q1

REPORT INFORMATION
  Report Type: 
  Country: None (occurrence: None)
  Receive Date: 20100216
  Receipt Date: 20100205
  Transmission Date: 20100710
  Serious: No
  Sender: FDA-Public Use
  Company Number: 20097804

PATIENT
  Sex: Male

DRUGS (1)
  1. LIORESAL [Suspect]
     Indication: MUSCLE SPASTICITY
     Dosage: 900 MCG, DAILY, INTRATHECAL
     Route: 037

REACTIONS (9)
  - ANXIETY [None]
  - AUTONOMIC NERVOUS SYSTEM IMBALANCE [None]
  - CARDIOVASCULAR DISORDER [None]
  - HYPERTONIA [None]
  - INJURY [None]
  - PYREXIA [None]
  - RESPIRATORY DISORDER [None]
  - SPEECH DISORDER [None]
  - TACHYCARDIA [None]
